FAERS Safety Report 26119517 (Version 3)
Quarter: 2025Q4

REPORT INFORMATION
  Report Type: Spontaneous
  Country: US (occurrence: US)
  Receive Date: 20251204
  Receipt Date: 20251204
  Transmission Date: 20260117
  Serious: Yes (Hospitalization, Other)
  Sender: ASSERTIO THERAPEUTICS
  Company Number: US-ASSERTIO THERAPEUTICS, INC.-US-2025AST000521

PATIENT
  Age: 64 Year
  Sex: Female

DRUGS (1)
  1. OXYCODONE HYDROCHLORIDE [Suspect]
     Active Substance: OXYCODONE HYDROCHLORIDE
     Indication: Product used for unknown indication
     Dosage: UNK
     Route: 065

REACTIONS (8)
  - Hallucinations, mixed [Unknown]
  - Delusion of grandeur [Unknown]
  - Blood pressure systolic increased [Unknown]
  - Nausea [Unknown]
  - Vomiting [Unknown]
  - Lacrimation increased [Unknown]
  - Diarrhoea [Unknown]
  - Drug withdrawal syndrome [Unknown]
